FAERS Safety Report 11897378 (Version 1)
Quarter: 2016Q1

REPORT INFORMATION
  Report Type: Spontaneous
  Country: US (occurrence: US)
  Receive Date: 20160108
  Receipt Date: 20160108
  Transmission Date: 20160526
  Serious: Yes (Hospitalization, Other)
  Sender: FDA-Public Use
  Company Number: US-DRREDDYS-USA/USA/15/0055106

PATIENT
  Age: 32 Year
  Sex: Female

DRUGS (1)
  1. NICOTINE. [Suspect]
     Active Substance: NICOTINE
     Indication: SMOKING CESSATION THERAPY
     Route: 065

REACTIONS (7)
  - Faeces discoloured [Unknown]
  - Anxiety [Unknown]
  - Electrocardiogram abnormal [Recovered/Resolved]
  - Tobacco poisoning [Recovered/Resolved]
  - Abdominal pain [Unknown]
  - Insomnia [Unknown]
  - Palpitations [Unknown]
